FAERS Safety Report 6089479 (Version 28)
Quarter: 2014Q3

REPORT INFORMATION
  Report Type: Spontaneous
  Country: US (occurrence: US)
  Receive Date: 20060724
  Receipt Date: 20140918
  Transmission Date: 20150326
  Serious: Yes (Other)
  Sender: FDA-Public Use
  Company Number: PHEH2006US08961

PATIENT
  Age: 45 Year
  Sex: Female
  Weight: 87.07 kg

DRUGS (63)
  1. VINCRISTINE [Concomitant]
     Active Substance: VINCRISTINE
     Indication: PLASMA CELL MYELOMA
     Dates: start: 1999, end: 2000
  2. CEPHALOSPORINES [Concomitant]
     Active Substance: UNSPECIFIED INGREDIENT
  3. COLACE [Concomitant]
     Active Substance: DOCUSATE SODIUM
     Dosage: 100 MG, QD
  4. COMPAZINE [Concomitant]
     Active Substance: PROCHLORPERAZINE MALEATE
     Indication: VOMITING
  5. FAMVIR                                  /UNK/ [Concomitant]
  6. MYCELEX [Concomitant]
     Active Substance: CLOTRIMAZOLE
  7. TYLENOL [Concomitant]
     Active Substance: ACETAMINOPHEN
  8. AREDIA [Suspect]
     Active Substance: PAMIDRONATE DISODIUM
     Dosage: 90 MG, QMO
     Route: 042
     Dates: start: 19990903, end: 20020410
  9. ADRIAMYCIN [Concomitant]
     Active Substance: DOXORUBICIN HYDROCHLORIDE
     Route: 042
     Dates: start: 1999, end: 2000
  10. MELPHALAN [Concomitant]
     Active Substance: MELPHALAN
  11. PENICILLIN ^GRUNENTHAL^ [Concomitant]
  12. CARBAPENEMS [Concomitant]
     Active Substance: UNSPECIFIED INGREDIENT
  13. FORTAZ [Concomitant]
     Active Substance: CEFTAZIDIME SODIUM
  14. DURAGESIC [Concomitant]
     Active Substance: FENTANYL
  15. CHEMOTHERAPEUTICS NOS [Concomitant]
     Active Substance: UNSPECIFIED INGREDIENT
     Dates: start: 1999
  16. NEOSPORIN OPHTHALMIC SOLUTION [Concomitant]
     Active Substance: GRAMICIDIN\NEOMYCIN SULFATE\POLYMYXIN B SULFATE
  17. CALCIUM CARBONATE. [Concomitant]
     Active Substance: CALCIUM CARBONATE
     Dosage: 1250 MG, TID AC
     Route: 048
  18. DDAVP                                   /UNK/ [Concomitant]
  19. KYTRIL [Concomitant]
     Active Substance: GRANISETRON HYDROCHLORIDE
  20. DARVOCET-N 100 [Concomitant]
     Active Substance: ACETAMINOPHEN\PROPOXYPHENE NAPSYLATE
  21. AZTREONAM. [Concomitant]
     Active Substance: AZTREONAM
  22. COMPAZINE [Concomitant]
     Active Substance: PROCHLORPERAZINE MALEATE
     Indication: NAUSEA
     Dosage: 10 MG, Q4H PRN
     Route: 048
  23. POTASSIUM CHLORIDE. [Concomitant]
     Active Substance: POTASSIUM CHLORIDE
  24. NEPHROCAPS [Concomitant]
     Active Substance: ASCORBIC ACID\BIOTIN\CYANOCOBALAMIN\FOLIC ACID\NIACIN\PANTOTHENIC ACID\PYRIDOXINE\RIBOFLAVIN\THIAMINE
     Route: 048
  25. NIFEREX [Concomitant]
     Active Substance: IRON\POLYSACCHARIDES
     Dosage: 150 MG, QD
     Route: 048
  26. PERCOCET [Concomitant]
     Active Substance: ACETAMINOPHEN\OXYCODONE HYDROCHLORIDE
     Indication: PAIN
  27. VITAMIN B12 [Concomitant]
     Active Substance: CYANOCOBALAMIN
     Dosage: 1000 UG, QW
     Route: 048
  28. CLARITIN-D 12 HOUR [Concomitant]
     Active Substance: LORATADINE\PSEUDOEPHEDRINE SULFATE
  29. DDAVP                                   /UNK/ [Concomitant]
  30. FOLIC ACID. [Concomitant]
     Active Substance: FOLIC ACID
     Dosage: 2 MG, QD
     Route: 048
  31. XANAX [Concomitant]
     Active Substance: ALPRAZOLAM
     Indication: DEPRESSION
     Dosage: 0.5 MG, Q8H
     Route: 048
  32. LEVAQUIN [Concomitant]
     Active Substance: LEVOFLOXACIN
     Dosage: 250 MG, QOD
  33. CIPROFLOXACIN. [Concomitant]
     Active Substance: CIPROFLOXACIN
     Dosage: 750 MG, Q12H
     Route: 048
  34. RESTORIL [Concomitant]
     Active Substance: TEMAZEPAM
     Indication: INSOMNIA
     Dosage: 15 MG, QHS
  35. BENADRYL ^ACHE^ [Concomitant]
     Active Substance: DIPHENHYDRAMINE HYDROCHLORIDE
  36. REGLAN [Concomitant]
     Active Substance: METOCLOPRAMIDE HYDROCHLORIDE
  37. AREDIA [Suspect]
     Active Substance: PAMIDRONATE DISODIUM
     Dosage: 30 MG, QMO
     Route: 042
     Dates: start: 200202
  38. DEXAMETHASONE. [Concomitant]
     Active Substance: DEXAMETHASONE
     Indication: PLASMA CELL MYELOMA
     Route: 042
     Dates: start: 1999, end: 2000
  39. ACYCLOVIR. [Concomitant]
     Active Substance: ACYCLOVIR
     Dosage: 400 MG, BID
     Route: 048
  40. TUMS [Concomitant]
     Active Substance: CALCIUM CARBONATE
  41. NIFEREX (POLYSACCHARIDE-IRON COMPLEX) [Concomitant]
     Active Substance: IRON\POLYSACCHARIDES
     Dosage: 150 MG, BID
  42. EPOGEN [Concomitant]
     Active Substance: ERYTHROPOIETIN
  43. ZITHROMAX [Concomitant]
     Active Substance: AZITHROMYCIN DIHYDRATE
  44. ZOLOFT [Concomitant]
     Active Substance: SERTRALINE HYDROCHLORIDE
  45. ALBUMIN ^BEHRING^ [Concomitant]
  46. PHOSLO [Concomitant]
     Active Substance: CALCIUM ACETATE
     Dosage: 667 MG, TID MEALS
  47. BEN-GAY [Concomitant]
     Active Substance: MENTHOL\METHYL SALICYLATE
     Route: 061
  48. ZOMETA [Suspect]
     Active Substance: ZOLEDRONIC ACID
     Dosage: 4 MG, QMO
     Route: 042
     Dates: start: 20020508, end: 20041013
  49. CYTOXAN [Concomitant]
     Active Substance: CYCLOPHOSPHAMIDE
     Indication: PLASMA CELL MYELOMA
     Route: 042
     Dates: start: 200003, end: 200004
  50. PROCRIT [Concomitant]
     Active Substance: ERYTHROPOIETIN
     Indication: ANAEMIA
  51. PRILOSEC [Concomitant]
     Active Substance: OMEPRAZOLE MAGNESIUM
     Dosage: 20 MG, BID
     Route: 048
  52. OXYCODONE [Concomitant]
     Active Substance: OXYCODONE
     Indication: PAIN
     Dosage: 5 MG, Q6H
     Route: 048
  53. FAMVIR                                  /UNK/ [Concomitant]
     Dates: start: 200009
  54. NEUPOGEN [Concomitant]
     Active Substance: FILGRASTIM
     Route: 058
  55. DIFLUCAN [Concomitant]
     Active Substance: FLUCONAZOLE
     Dosage: 400 MG, QD
     Route: 048
  56. METHYLPREDNISOLONE [Concomitant]
     Active Substance: METHYLPREDNISOLONE
  57. DECADRON [Concomitant]
     Active Substance: DEXAMETHASONE
     Dosage: 4 MG, Q6H
  58. OVRAL [Concomitant]
     Active Substance: ETHINYL ESTRADIOL\NORGESTREL
     Route: 048
  59. LIDOCAINE. [Concomitant]
     Active Substance: LIDOCAINE
     Route: 058
  60. MULTIVITAMINS [Concomitant]
     Active Substance: VITAMINS
  61. LACTULOSE. [Concomitant]
     Active Substance: LACTULOSE
     Dosage: 20 G, BID
     Route: 048
  62. LASIX [Concomitant]
     Active Substance: FUROSEMIDE
  63. VICODIN [Concomitant]
     Active Substance: ACETAMINOPHEN\HYDROCODONE BITARTRATE

REACTIONS (105)
  - Tooth disorder [Unknown]
  - Abscess [Unknown]
  - Wound complication [Not Recovered/Not Resolved]
  - Gingival erosion [Unknown]
  - Gingival hypertrophy [Unknown]
  - Bone pain [Unknown]
  - Anaemia [Unknown]
  - Synovial cyst [Unknown]
  - Acute sinusitis [Unknown]
  - Epigastric discomfort [Unknown]
  - Osteoporosis [Unknown]
  - Blindness [Unknown]
  - Diverticulum intestinal [Unknown]
  - Soft tissue infection [Unknown]
  - Neoplasm malignant [Unknown]
  - Temporomandibular joint syndrome [Unknown]
  - Lung disorder [Unknown]
  - Facial pain [Unknown]
  - Laryngitis [Unknown]
  - Upper-airway cough syndrome [Unknown]
  - Ulcer haemorrhage [Unknown]
  - Otitis media [Unknown]
  - Diarrhoea [Unknown]
  - Tendon pain [Unknown]
  - Rhinitis [Unknown]
  - Stomatitis [Recovered/Resolved]
  - Oral disorder [Unknown]
  - Tongue injury [Unknown]
  - Pain in jaw [Unknown]
  - Hyperkalaemia [Unknown]
  - Hypernatraemia [Unknown]
  - Electrocardiogram QT prolonged [Unknown]
  - Pyrexia [Unknown]
  - Dizziness [Unknown]
  - Paraesthesia oral [Unknown]
  - Deafness [Unknown]
  - Nasal congestion [Unknown]
  - Necrosis [Unknown]
  - Pain [Unknown]
  - Bone cyst [Unknown]
  - Infection [Recovered/Resolved]
  - Soft tissue inflammation [Unknown]
  - Herpes zoster [Unknown]
  - Pharyngitis [Unknown]
  - Tricuspid valve incompetence [Unknown]
  - Ear pain [Unknown]
  - Colon adenoma [Unknown]
  - Hypoaesthesia [Unknown]
  - Dysgeusia [Unknown]
  - Retinal infarction [Recovering/Resolving]
  - Visual impairment [Recovering/Resolving]
  - Oral discomfort [Unknown]
  - Gingival swelling [Unknown]
  - Gastrointestinal disorder [Unknown]
  - Alopecia [Unknown]
  - Musculoskeletal chest pain [Unknown]
  - Cough [Unknown]
  - Mitral valve incompetence [Unknown]
  - Stress [Unknown]
  - Paranasal sinus discomfort [Unknown]
  - Mouth ulceration [Unknown]
  - Dyspnoea [Unknown]
  - Chills [Unknown]
  - Gingival pain [Recovering/Resolving]
  - Mouth haemorrhage [Unknown]
  - Plasmacytoma [Unknown]
  - Influenza like illness [Unknown]
  - Arthralgia [Recovered/Resolved]
  - Splenomegaly [Unknown]
  - Dyspepsia [Unknown]
  - Irritable bowel syndrome [Unknown]
  - Mass [Unknown]
  - Vertigo [Unknown]
  - Eye discharge [Unknown]
  - Osteonecrosis of jaw [Not Recovered/Not Resolved]
  - Injury [Unknown]
  - Gingival inflammation [Unknown]
  - Mastication disorder [Unknown]
  - Gingival bleeding [Unknown]
  - Wound secretion [Unknown]
  - Bone lesion [Unknown]
  - Myalgia [Unknown]
  - Headache [Unknown]
  - Disease progression [Unknown]
  - Hot flush [Unknown]
  - Bone fragmentation [Unknown]
  - Rhinorrhoea [Unknown]
  - Large intestine polyp [Unknown]
  - Wheezing [Unknown]
  - Breath odour [Unknown]
  - Oral pain [Unknown]
  - Anxiety [Unknown]
  - Tooth fracture [Unknown]
  - Bone disorder [Unknown]
  - Impaired healing [Not Recovered/Not Resolved]
  - Vaginal haemorrhage [Recovered/Resolved]
  - Blood calcium decreased [Unknown]
  - Sinus tachycardia [Unknown]
  - Bronchitis [Unknown]
  - Hypercholesterolaemia [Unknown]
  - Frequent bowel movements [Unknown]
  - Breast calcifications [Unknown]
  - Bone swelling [Unknown]
  - Ear discomfort [Unknown]
  - Chest discomfort [Unknown]

NARRATIVE: CASE EVENT DATE: 20021009
